FAERS Safety Report 5208530-X (Version None)
Quarter: 2007Q1

REPORT INFORMATION
  Report Type: 
  Country: None (occurrence: None)
  Receive Date: 20070115
  Receipt Date: 20070109
  Transmission Date: 20070707
  Serious: Yes (Hospitalization)
  Sender: FDA-Public Use
  Company Number: US-BOEHRINGER INGELHEIM PHARMACEUTICALS, INC.-2007-DE-00161GD

PATIENT
  Age: 73 Year
  Sex: Female

DRUGS (7)
  1. HYDROCHLOROTHIAZIDE [Suspect]
     Indication: HYPERTENSION
  2. CLONIDINE [Suspect]
     Indication: HYPERTENSION
  3. METOPROLOL SUCCINATE [Suspect]
     Indication: HYPERTENSION
  4. DILTIAZEM HCL [Suspect]
     Indication: HYPERTENSION
  5. LISINOPRIL [Suspect]
     Indication: HYPERTENSION
  6. FELODIPINE [Suspect]
     Indication: HYPERTENSION
  7. OTHER DRUGS [Concomitant]

REACTIONS (8)
  - ASTHENIA [None]
  - DIZZINESS [None]
  - DYSPNOEA EXERTIONAL [None]
  - EXTRASYSTOLES [None]
  - FATIGUE [None]
  - NODAL RHYTHM [None]
  - PRESYNCOPE [None]
  - SINUS BRADYCARDIA [None]
